FAERS Safety Report 9918173 (Version 2)
Quarter: 2014Q1

REPORT INFORMATION
  Report Type: Spontaneous
  Country: US (occurrence: US)
  Receive Date: 20140223
  Receipt Date: 20140223
  Transmission Date: 20141002
  Serious: Yes (Disabling)
  Sender: FDA-Public Use
  Company Number: US-GE HEALTHCARE MEDICAL DIAGNOSTICS-OSCN-PR-0805S-0260

PATIENT
  Age: 68 Year
  Sex: Female

DRUGS (12)
  1. OMNISCAN [Suspect]
     Indication: PRODUCT USED FOR UNKNOWN INDICATION
     Dates: start: 20030312, end: 20030312
  2. OMNISCAN [Suspect]
     Dates: start: 20030716, end: 20030716
  3. OMNISCAN [Suspect]
     Dates: start: 20030731, end: 20030731
  4. OMNISCAN [Suspect]
     Route: 042
     Dates: start: 20040126, end: 20040126
  5. OMNISCAN [Suspect]
     Route: 042
     Dates: start: 20050216, end: 20050216
  6. OMNISCAN [Suspect]
     Dates: start: 20030411, end: 20030411
  7. GADOLINIUM (UNSPECIFIED) [Suspect]
     Indication: PRODUCT USED FOR UNKNOWN INDICATION
     Dates: start: 20020130, end: 20020130
  8. GADOLINIUM (UNSPECIFIED) [Suspect]
     Dates: start: 20020404, end: 20020404
  9. GADOLINIUM (UNSPECIFIED) [Suspect]
     Dates: start: 20020717, end: 20020717
  10. GADOLINIUM (UNSPECIFIED) [Suspect]
     Dates: start: 20040616, end: 20040616
  11. GADOLINIUM (UNSPECIFIED) [Suspect]
     Dates: start: 20050323, end: 20050323
  12. GADOLINIUM (UNSPECIFIED) [Suspect]
     Dates: start: 20051207, end: 20051207

REACTIONS (1)
  - Nephrogenic systemic fibrosis [Not Recovered/Not Resolved]
